FAERS Safety Report 18977315 (Version 1)
Quarter: 2021Q1

REPORT INFORMATION
  Report Type: Spontaneous
  Country: IN (occurrence: IN)
  Receive Date: 20210306
  Receipt Date: 20210306
  Transmission Date: 20210420
  Serious: Yes (Death, Life-Threatening, Other)
  Sender: FDA-Public Use
  Company Number: IN-ACCORD-218560

PATIENT
  Age: 12 Year
  Sex: Male

DRUGS (4)
  1. FLUOROURACIL. [Suspect]
     Active Substance: FLUOROURACIL
     Indication: OESOPHAGEAL ADENOCARCINOMA
     Dosage: 25% DOSE REDUCTION
  2. FOLINIC ACID [Concomitant]
     Active Substance: LEUCOVORIN
     Indication: OESOPHAGEAL ADENOCARCINOMA
     Dosage: 25% DOSE REDUCTION
  3. DOCETAXEL. [Concomitant]
     Active Substance: DOCETAXEL
     Indication: OESOPHAGEAL ADENOCARCINOMA
     Dosage: 25% DOSE REDUCTION
  4. OXALIPLATIN. [Concomitant]
     Active Substance: OXALIPLATIN
     Indication: OESOPHAGEAL ADENOCARCINOMA
     Dosage: 25% DOSE REDUCTION

REACTIONS (7)
  - Cardiac arrest [Fatal]
  - Apnoea [Fatal]
  - Bradycardia [Fatal]
  - Headache [Unknown]
  - Hypotension [Fatal]
  - Abdominal pain [Unknown]
  - Seizure [Unknown]
